FAERS Safety Report 25022662 (Version 1)
Quarter: 2025Q1

REPORT INFORMATION
  Report Type: Spontaneous
  Country: US (occurrence: None)
  Receive Date: 20250227
  Receipt Date: 20250227
  Transmission Date: 20250409
  Serious: Yes (Hospitalization)
  Sender: FDA-CTU
  Company Number: None

PATIENT
  Age: 79 Year
  Sex: Female

DRUGS (10)
  1. ADEMPAS [Suspect]
     Active Substance: RIOCIGUAT
     Indication: Pulmonary hypertension
     Dosage: FREQUENCY : 3 TIMES A DAY;?
     Route: 048
     Dates: start: 20200326
  2. WARFARIN [Suspect]
     Active Substance: WARFARIN
  3. TYLENOL [Suspect]
     Active Substance: ACETAMINOPHEN
  4. CALCITONIN [Suspect]
     Active Substance: CALCITONIN
  5. PANTOPRAZOLE [Concomitant]
     Active Substance: PANTOPRAZOLE
  6. ROSUVASTATIN [Concomitant]
     Active Substance: ROSUVASTATIN
  7. MONTELUKAST [Concomitant]
     Active Substance: MONTELUKAST
  8. ALBUTEROL SULFATE [Concomitant]
     Active Substance: ALBUTEROL SULFATE
  9. WIXELA INHUB [Concomitant]
     Active Substance: FLUTICASONE PROPIONATE\SALMETEROL XINAFOATE
  10. ENOXAPARIN [Concomitant]
     Active Substance: ENOXAPARIN

REACTIONS (5)
  - Haematemesis [None]
  - Anticoagulation drug level above therapeutic [None]
  - Anaemia [None]
  - Hypotension [None]
  - Therapy interrupted [None]

NARRATIVE: CASE EVENT DATE: 20250224
